FAERS Safety Report 13439995 (Version 1)
Quarter: 2017Q2

REPORT INFORMATION
  Report Type: Spontaneous
  Country: DE (occurrence: DE)
  Receive Date: 20170413
  Receipt Date: 20170413
  Transmission Date: 20170830
  Serious: Yes (Hospitalization, Other)
  Sender: FDA-Public Use
  Company Number: DE-JNJFOC-20170405779

PATIENT
  Age: 17 Month
  Weight: 10 kg

DRUGS (3)
  1. KAOPECTATE REGULAR STRENGTH CHERRY FLAVOR [Suspect]
     Active Substance: BISMUTH SUBSALICYLATE
     Indication: GASTROENTERITIS
     Route: 065
  2. LOPERAMIDE [Suspect]
     Active Substance: LOPERAMIDE
     Route: 065
  3. LOPERAMIDE [Suspect]
     Active Substance: LOPERAMIDE
     Indication: GASTROENTERITIS
     Route: 065

REACTIONS (4)
  - Somnolence [Unknown]
  - Ileus [Unknown]
  - Overdose [Unknown]
  - Dehydration [Recovering/Resolving]
